FAERS Safety Report 7911440-8 (Version None)
Quarter: 2011Q4

REPORT INFORMATION
  Report Type: 
  Country: None (occurrence: None)
  Receive Date: 20111114
  Receipt Date: 20111109
  Transmission Date: 20120403
  Serious: Yes (Hospitalization, Other)
  Sender: FDA-Public Use
  Company Number: US-BAYER-2011-109376

PATIENT
  Age: 64 Year
  Sex: Female
  Weight: 83 kg

DRUGS (7)
  1. GLIMEPIRIDE [Concomitant]
  2. VISTARIL [Concomitant]
  3. PROZAC [Concomitant]
  4. ALEVE (CAPLET) [Suspect]
     Indication: HEADACHE
     Dosage: 1 DF, QD
     Route: 048
     Dates: start: 20111108, end: 20111108
  5. SYNTHROID [Concomitant]
  6. SINDASTATIN [Concomitant]
  7. ADDERALL 5 [Concomitant]

REACTIONS (6)
  - THROAT TIGHTNESS [None]
  - HYPERSENSITIVITY [None]
  - SWELLING [None]
  - FACE OEDEMA [None]
  - SWOLLEN TONGUE [None]
  - SPEECH DISORDER [None]
